FAERS Safety Report 16606617 (Version 1)
Quarter: 2019Q3

REPORT INFORMATION
  Report Type: Spontaneous
  Country: US (occurrence: US)
  Receive Date: 20190722
  Receipt Date: 20190722
  Transmission Date: 20191004
  Serious: No
  Sender: FDA-Public Use
  Company Number: US-P+ L DEVELOPMENTS OF NEWYORK CORPORATION-2071089

PATIENT
  Sex: Male

DRUGS (2)
  1. MOTRIN [Concomitant]
     Active Substance: IBUPROFEN
     Route: 065
  2. LORATADINE. [Suspect]
     Active Substance: LORATADINE
     Indication: COUGH
     Route: 065

REACTIONS (2)
  - Rash [Unknown]
  - Lip swelling [Unknown]
